FAERS Safety Report 9814841 (Version 1)
Quarter: 2014Q1

REPORT INFORMATION
  Report Type: Spontaneous
  Country: US (occurrence: US)
  Receive Date: 20140113
  Receipt Date: 20140113
  Transmission Date: 20141002
  Serious: Yes (Other)
  Sender: FDA-Public Use
  Company Number: US-GLAXOSMITHKLINE-A1056002A

PATIENT
  Age: 59 Year
  Sex: Female

DRUGS (13)
  1. REQUIP XL [Suspect]
     Indication: RESTLESS LEGS SYNDROME
     Dosage: 4MG AT NIGHT
     Route: 048
  2. INSULIN [Concomitant]
  3. PRAVASTATIN [Concomitant]
  4. METFORMIN [Concomitant]
  5. BENAZEPRIL [Concomitant]
  6. NORCO [Concomitant]
  7. VOLTAREN [Concomitant]
  8. ASPIRIN [Concomitant]
  9. NYSTATIN CREAM [Concomitant]
  10. AMITRIPTYLINE [Concomitant]
  11. DILANTIN [Concomitant]
  12. GABAPENTIN [Concomitant]
  13. UNKNOWN MEDICATION [Concomitant]

REACTIONS (4)
  - Choking [Recovering/Resolving]
  - Influenza [Recovering/Resolving]
  - Cough [Recovering/Resolving]
  - Off label use [Unknown]
